FAERS Safety Report 6025454-9 (Version None)
Quarter: 2008Q4

REPORT INFORMATION
  Report Type: 
  Country: None (occurrence: None)
  Receive Date: 20081224
  Receipt Date: 20081215
  Transmission Date: 20090506
  Serious: Yes (Hospitalization)
  Sender: FDA-Public Use
  Company Number: FR-DEXPHARM-20081485

PATIENT
  Age: 62 Year
  Sex: Female

DRUGS (2)
  1. OMEPRAZOLE [Suspect]
     Indication: HIATUS HERNIA
     Dosage: 20 MG MILLIGRAM(S), 1 IN 1 DAY ORAL
     Route: 048
  2. ESOMEPRAZOLE [Suspect]
     Indication: HIATUS HERNIA
     Dosage: 40 MG MILLIGRAM(S), 1 IN 1 DAY ORAL
     Route: 048

REACTIONS (7)
  - BLOOD PHOSPHORUS INCREASED [None]
  - GIARDIASIS [None]
  - HYPOCALCAEMIA [None]
  - HYPOMAGNESAEMIA [None]
  - HYPOPARATHYROIDISM [None]
  - MALABSORPTION [None]
  - RED BLOOD CELL COUNT DECREASED [None]
